FAERS Safety Report 11231342 (Version 2)
Quarter: 2015Q3

REPORT INFORMATION
  Report Type: Spontaneous
  Country: JP (occurrence: JP)
  Receive Date: 20150701
  Receipt Date: 20150825
  Transmission Date: 20151125
  Serious: Yes (Hospitalization)
  Sender: FDA-Public Use
  Company Number: JP-SA-2015SA092002

PATIENT
  Age: 67 Year
  Sex: Male

DRUGS (1)
  1. FUROSEMIDE. [Suspect]
     Active Substance: FUROSEMIDE
     Indication: NEPHROTIC SYNDROME
     Dosage: INFUSION.
     Route: 065

REACTIONS (6)
  - Dehydration [Unknown]
  - Renal vessel disorder [Unknown]
  - Swelling [Recovering/Resolving]
  - Pancreatic enzymes increased [Recovering/Resolving]
  - Pancreatic abscess [Unknown]
  - Pancreatitis acute [Recovering/Resolving]
